FAERS Safety Report 10707121 (Version 1)
Quarter: 2015Q1

REPORT INFORMATION
  Report Type: Report from Study
  Country: IE (occurrence: IE)
  Receive Date: 20150113
  Receipt Date: 20150113
  Transmission Date: 20150721
  Serious: Yes (Other)
  Sender: FDA-Public Use
  Company Number: IE-AMGEN-IRLSL2015002383

PATIENT
  Sex: Female

DRUGS (1)
  1. PROLIA [Suspect]
     Active Substance: DENOSUMAB
     Indication: OSTEOPOROSIS
     Dosage: 60 MUG, Q6MO
     Route: 058

REACTIONS (4)
  - Abdominal pain upper [Unknown]
  - Pain [Unknown]
  - Dry eye [Unknown]
  - Urinary tract infection [Unknown]
